FAERS Safety Report 5394863-3 (Version None)
Quarter: 2007Q3

REPORT INFORMATION
  Report Type: 
  Country: None (occurrence: None)
  Receive Date: 20070720
  Receipt Date: 20070709
  Transmission Date: 20080115
  Serious: Yes (Life-Threatening, Disabling)
  Sender: FDA-Public Use
  Company Number: OSCN-NO-0705S-0215

PATIENT
  Age: 43 Year
  Sex: Male

DRUGS (1)
  1. OMNISCAN [Suspect]
     Indication: RENAL TRANSPLANT
     Dosage: 15 ML, SINGLE DOSE, I.V.
     Route: 042
     Dates: start: 20000718, end: 20000718

REACTIONS (7)
  - ABASIA [None]
  - FEELING HOT [None]
  - JOINT CONTRACTURE [None]
  - MUSCULAR WEAKNESS [None]
  - OEDEMA PERIPHERAL [None]
  - PAIN [None]
  - SCLEREMA [None]
